FAERS Safety Report 4270936-3 (Version None)
Quarter: 2004Q1

REPORT INFORMATION
  Report Type: 
  Country: None (occurrence: None)
  Receive Date: 20040113
  Receipt Date: 20030105
  Transmission Date: 20041129
  Serious: Yes (Hospitalization)
  Sender: FDA-Public Use
  Company Number: 03-0079

PATIENT
  Age: 32 Year
  Sex: Female

DRUGS (16)
  1. PONTAL (MEFANAMIC ACID) PONSTEL NDA 15-034 [Suspect]
     Indication: UPPER RESPIRATORY TRACT INFECTION
     Dosage: 750 MG, PO
     Route: 048
     Dates: start: 20031014
  2. VOLTAREN [Suspect]
     Indication: UPPER RESPIRATORY TRACT INFECTION
     Dosage: 25MG, ONCE, RECTALLY
     Route: 054
     Dates: start: 20031014
  3. SATKOKEISHITOU (HERB) [Suspect]
     Indication: UPPER RESPIRATORY TRACT INFECTION
     Dosage: 2.5 GRAM DAILY PO
     Route: 048
     Dates: start: 20031014, end: 20031014
  4. MAOTO (HERB) [Suspect]
     Indication: UPPER RESPIRATORY TRACT INFECTION
     Dosage: 2.5 GRAM DAILY PO
     Route: 048
     Dates: start: 20031014, end: 20031014
  5. CEFOTIAM HYDROCHLORIDE [Suspect]
     Indication: UPPER RESPIRATORY TRACT INFECTION
     Dosage: 1 GRAM
     Dates: start: 20031014, end: 20031014
  6. PL GRAN(CAFFEINE, SALICYLAMIDE, PARCETAMOL, PROMETHAZINE HYDROCHLORIDE [Suspect]
     Indication: UPPER RESPIRATORY TRACT INFECTION
     Dosage: 2 GRAM BID PO
     Route: 048
     Dates: start: 20031014, end: 20031014
  7. PAROXETINE HYDROCHORIDE [Concomitant]
  8. CLONAZEPAM [Concomitant]
  9. IMPIRAMINE HYDROCHLORIDE [Concomitant]
  10. PERICIAZINE [Concomitant]
  11. PROMETHAZINE HCL [Concomitant]
  12. NITRAZEPAM [Concomitant]
  13. BROTIZOLAM [Concomitant]
  14. MAGNESIUM OXIDE [Concomitant]
  15. SIMVASTATIN [Concomitant]
  16. SODIUM PICOSULFATE [Concomitant]

REACTIONS (6)
  - BLOOD PRESSURE DECREASED [None]
  - DRUG HYPERSENSITIVITY [None]
  - HAEMOGLOBIN DECREASED [None]
  - HEPATIC ENZYME INCREASED [None]
  - LYMPHOCYTE STIMULATION TEST POSITIVE [None]
  - PNEUMONIA [None]
